FAERS Safety Report 21527727 (Version 1)
Quarter: 2022Q4

REPORT INFORMATION
  Report Type: Spontaneous
  Country: US (occurrence: US)
  Receive Date: 20221031
  Receipt Date: 20221031
  Transmission Date: 20230112
  Serious: Yes (Hospitalization)
  Sender: FDA-Public Use
  Company Number: US-MYLANLABS-2022M1117959

PATIENT
  Age: 17 Year
  Sex: Male

DRUGS (4)
  1. DOXYCYCLINE [Interacting]
     Active Substance: DOXYCYCLINE
     Indication: Cat scratch disease
     Dosage: 100 MILLIGRAM, BID
     Route: 048
  2. RIFAMPIN [Interacting]
     Active Substance: RIFAMPIN
     Indication: Cat scratch disease
     Dosage: 300 MILLIGRAM, BID
     Route: 048
  3. PREDNISONE [Interacting]
     Active Substance: PREDNISONE
     Indication: Cat scratch disease
     Dosage: 1 MILLIGRAM/KILOGRAM, BID
     Route: 065
  4. PREDNISONE [Interacting]
     Active Substance: PREDNISONE
     Dosage: 50 MILLIGRAM, QD
     Route: 065

REACTIONS (4)
  - Drug interaction [Recovering/Resolving]
  - Vitritis [Recovered/Resolved]
  - Retinal haemorrhage [Recovered/Resolved]
  - Optic neuritis [Recovering/Resolving]
